FAERS Safety Report 4294406-1 (Version None)
Quarter: 2004Q1

REPORT INFORMATION
  Report Type: 
  Country: None (occurrence: None)
  Receive Date: 20040211
  Receipt Date: 20040129
  Transmission Date: 20041129
  Serious: Yes (Hospitalization)
  Sender: FDA-Public Use
  Company Number: 03P-163-0242575-00

PATIENT
  Age: 54 Year
  Sex: Female

DRUGS (7)
  1. HUMIRA [Suspect]
     Indication: RHEUMATOID ARTHRITIS
     Dosage: 40 MG, 1 IN 2 WK, SUBCUTANEOUS
     Route: 058
     Dates: start: 20030101, end: 20030101
  2. PREDNISONE [Concomitant]
  3. PHTHALYLSULFATHIZOLE [Concomitant]
  4. HYDROXYCHLOROQUINE PHSOPHATE [Concomitant]
  5. OXYCODONE HCL [Concomitant]
  6. HYDROMORPHONE HYDROCHLORIDE [Concomitant]
  7. AMITRYPTALINE [Concomitant]

REACTIONS (4)
  - ARTERIAL THROMBOSIS [None]
  - ARTHRITIS INFECTIVE [None]
  - GANGRENE [None]
  - TOE AMPUTATION [None]
